FAERS Safety Report 9786211 (Version 1)
Quarter: 2013Q4

REPORT INFORMATION
  Report Type: Other
  Country: US (occurrence: US)
  Receive Date: 20131227
  Receipt Date: 20131227
  Transmission Date: 20140711
  Serious: Yes (Hospitalization)
  Sender: FDA-Public Use
  Company Number: US-BRISTOL-MYERS SQUIBB COMPANY-19932268

PATIENT
  Age: 43 Year
  Sex: Male

DRUGS (2)
  1. CISPLATIN [Suspect]
     Indication: TESTICULAR SEMINOMA (PURE)
  2. ETOPOSIDE [Suspect]
     Indication: TESTICULAR SEMINOMA (PURE)

REACTIONS (3)
  - Anaemia [Unknown]
  - Thrombocytopenia [Unknown]
  - Retinopathy [Recovered/Resolved]
